FAERS Safety Report 17661245 (Version 4)
Quarter: 2020Q4

REPORT INFORMATION
  Report Type: Spontaneous
  Country: US (occurrence: US)
  Receive Date: 20200413
  Receipt Date: 20201203
  Transmission Date: 20210113
  Serious: No
  Sender: FDA-Public Use
  Company Number: US-PFIZER INC-2020148814

PATIENT
  Age: 33 Year
  Sex: Female

DRUGS (2)
  1. BOSULIF [Suspect]
     Active Substance: BOSUTINIB MONOHYDRATE
     Indication: CHRONIC MYELOID LEUKAEMIA
     Dosage: 200 MG, DAILY
     Route: 048
  2. BOSULIF [Suspect]
     Active Substance: BOSUTINIB MONOHYDRATE
     Dosage: 300 MG, DAILY (3 TABLETS OF 100 MG, DAILY, WITH FOOD)
     Route: 048
     Dates: start: 202004

REACTIONS (4)
  - Skin exfoliation [Unknown]
  - Product dose omission issue [Unknown]
  - Dry skin [Unknown]
  - Anxiety [Unknown]
